FAERS Safety Report 8460826-4 (Version None)
Quarter: 2012Q2

REPORT INFORMATION
  Report Type: 
  Country: None (occurrence: None)
  Receive Date: 20120624
  Receipt Date: 20120518
  Transmission Date: 20120825
  Serious: Yes (Hospitalization, Other)
  Sender: FDA-Public Use
  Company Number: PHHY2012NO012070

PATIENT
  Sex: Female
  Weight: 73 kg

DRUGS (2)
  1. EXJADE [Suspect]
     Indication: CHELATION THERAPY
  2. EXJADE [Suspect]
     Indication: CONGENITAL APLASTIC ANAEMIA
     Dosage: 1000 MG, UNK
     Route: 048
     Dates: start: 20100827, end: 20100927

REACTIONS (5)
  - NEUTROPENIA [None]
  - NEUTROPHIL COUNT DECREASED [None]
  - VIRAL INFECTION [None]
  - WHITE BLOOD CELL COUNT DECREASED [None]
  - PYREXIA [None]
